FAERS Safety Report 8370802-8 (Version None)
Quarter: 2012Q2

REPORT INFORMATION
  Report Type: 
  Country: None (occurrence: None)
  Receive Date: 20120518
  Receipt Date: 20120418
  Transmission Date: 20120825
  Serious: Yes (Hospitalization, Other)
  Sender: FDA-Public Use
  Company Number: US-ALEXION-A201200617

PATIENT
  Sex: Female
  Weight: 58 kg

DRUGS (5)
  1. NEORAL [Concomitant]
     Dosage: 50 MG, BID (Q12H)
     Route: 048
     Dates: start: 20120201
  2. ENOXAPARIN [Suspect]
     Dosage: 60 MG, QD (Q24H)
     Route: 058
     Dates: start: 20120222
  3. SOLIRIS [Suspect]
     Indication: HAEMOLYTIC URAEMIC SYNDROME
     Dosage: 900 MG, QW
     Route: 042
     Dates: start: 20120215, end: 20120307
  4. PREDNISONE [Concomitant]
     Dosage: 5 MG, QD
     Route: 048
     Dates: start: 20120101
  5. ENOXAPARIN [Suspect]
     Dosage: 60 MG, BID (Q12H)
     Route: 058
     Dates: start: 20120307, end: 20120312

REACTIONS (5)
  - RENAL FAILURE [None]
  - HAEMATOMA [None]
  - THROMBOCYTOPENIA [None]
  - DRUG INEFFECTIVE [None]
  - CONDITION AGGRAVATED [None]
